FAERS Safety Report 5251486-4 (Version None)
Quarter: 2007Q1

REPORT INFORMATION
  Report Type: 
  Country: None (occurrence: None)
  Receive Date: 20070228
  Receipt Date: 20060526
  Transmission Date: 20070707
  Serious: No
  Sender: FDA-Public Use
  Company Number: US-GLAXOSMITHKLINE-A0605843A

PATIENT
  Age: 16 Year
  Sex: Female

DRUGS (6)
  1. LAMICTAL [Suspect]
     Indication: BIPOLAR DISORDER
     Dosage: 150MG PER DAY
     Route: 048
     Dates: start: 20060329
  2. KLONOPIN [Concomitant]
  3. LUNESTA [Concomitant]
  4. YASMIN [Concomitant]
  5. ALLEGRA [Concomitant]
  6. ATIVAN [Concomitant]

REACTIONS (5)
  - ANXIETY [None]
  - DEPRESSION [None]
  - DRUG INEFFECTIVE [None]
  - INSOMNIA [None]
  - SOMNOLENCE [None]
